FAERS Safety Report 8426903-9 (Version None)
Quarter: 2012Q2

REPORT INFORMATION
  Report Type: 
  Country: None (occurrence: None)
  Receive Date: 20120323
  Receipt Date: 20110502
  Transmission Date: 20120825
  Serious: Yes (Hospitalization, Other)
  Sender: FDA-Public Use
  Company Number: 163-21880-11043589

PATIENT
  Age: 54 Year
  Sex: Male

DRUGS (7)
  1. CISPLATIN [Concomitant]
  2. ETOPOSIDE [Concomitant]
  3. THALOMID [Suspect]
     Indication: PRODUCT USED FOR UNKNOWN INDICATION
  4. DEXAMETHASONE [Concomitant]
  5. CYCLOPHOSPHAMIDE [Concomitant]
  6. REVLIMID [Suspect]
     Indication: MULTIPLE MYELOMA
     Dosage: 15 MG, 1 IN 1 D, PO
     Route: 048
     Dates: start: 20101001
  7. ADRIAMYCIN PFS [Concomitant]

REACTIONS (1)
  - DISEASE PROGRESSION [None]
